FAERS Safety Report 8948110 (Version 2)
Quarter: 2012Q4

REPORT INFORMATION
  Report Type: 
  Country: TR (occurrence: TR)
  Receive Date: 20121204
  Receipt Date: 20121218
  Transmission Date: 20130627
  Serious: Yes (Life-Threatening, Hospitalization, Other)
  Sender: FDA-Public Use
  Company Number: TR-GLAXOSMITHKLINE-B0849372A

PATIENT
  Age: 79 Year
  Sex: Female

DRUGS (2)
  1. VALTREX [Suspect]
     Indication: HERPES ZOSTER
     Dosage: 3G Per day
     Route: 048
     Dates: start: 20121031, end: 20121107
  2. VITAMIN B COMPLEX [Concomitant]
     Indication: NUTRITIONAL SUPPORT
     Route: 048
     Dates: start: 20121031, end: 20121107

REACTIONS (5)
  - Mucosal haemorrhage [Recovered/Resolved]
  - Prothrombin time prolonged [Recovered/Resolved]
  - Ecchymosis [Unknown]
  - Post procedural haemorrhage [Recovered/Resolved]
  - International normalised ratio increased [Recovered/Resolved]
